FAERS Safety Report 6741423-5 (Version None)
Quarter: 2010Q2

REPORT INFORMATION
  Report Type: 
  Country: None (occurrence: None)
  Receive Date: 20100526
  Receipt Date: 20100517
  Transmission Date: 20101027
  Serious: Yes (Other)
  Sender: FDA-Public Use
  Company Number: JP-BAYER-201012391BYL

PATIENT
  Age: 58 Year
  Sex: Male

DRUGS (7)
  1. MAGNEVIST [Suspect]
     Indication: NUCLEAR MAGNETIC RESONANCE IMAGING
     Route: 042
     Dates: start: 20080422, end: 20080422
  2. MAGNEVIST [Suspect]
     Route: 042
     Dates: start: 20100114, end: 20100114
  3. MAGNESCOPE [Suspect]
     Indication: NUCLEAR MAGNETIC RESONANCE IMAGING
     Route: 042
     Dates: start: 20090717, end: 20090717
  4. MAGNESCOPE [Suspect]
     Route: 042
     Dates: start: 20100428, end: 20100428
  5. MAGNESCOPE [Suspect]
     Route: 042
     Dates: start: 20091022, end: 20091022
  6. CONTRAST MEDIA [Suspect]
     Indication: SCAN WITH CONTRAST
     Dosage: TRIPLE DOSE
     Route: 065
  7. CHEMOTHERAPEUTIC [Suspect]
     Indication: CHEMOTHERAPY
     Route: 041

REACTIONS (1)
  - VASCULITIS [None]
